FAERS Safety Report 8906815 (Version 2)
Quarter: 2013Q1

REPORT INFORMATION
  Report Type: Spontaneous
  Country: ES (occurrence: ES)
  Receive Date: 20121114
  Receipt Date: 20130308
  Transmission Date: 20140127
  Serious: Yes (Hospitalization, Other)
  Sender: FDA-Public Use
  Company Number: ES-ELI_LILLY_AND_COMPANY-ES201211002017

PATIENT
  Sex: Male
  Weight: 71 kg

DRUGS (3)
  1. FORSTEO [Suspect]
     Indication: OSTEOPOROSIS
     Dosage: 20 UG, QD
     Route: 058
     Dates: start: 20120731
  2. LYRICA [Concomitant]
     Dosage: 75 DF, UNKNOWN
     Route: 048
  3. HIDROXIL B12 B6 B1 [Concomitant]
     Route: 048

REACTIONS (1)
  - Pseudarthrosis [Not Recovered/Not Resolved]
